FAERS Safety Report 4736463-1 (Version None)
Quarter: 2005Q3

REPORT INFORMATION
  Report Type: 
  Country: None (occurrence: None)
  Receive Date: 20050804
  Receipt Date: 20050725
  Transmission Date: 20060218
  Serious: Yes (Death, Hospitalization)
  Sender: FDA-Public Use
  Company Number: US-2005-006976

PATIENT
  Age: 65 Year
  Sex: Male

DRUGS (23)
  1. BETASERON [Suspect]
     Indication: SECONDARY PROGRESSIVE MULTIPLE SCLEROSIS
     Dosage: SUBCUTANEOUS
     Route: 058
     Dates: start: 19940325, end: 20050329
  2. ARICEPT [Concomitant]
  3. ASPIRIN ^SMITHKLINE BEECHAM^ [Concomitant]
  4. ASPIRIN [Concomitant]
  5. ANAFRANIL [Concomitant]
  6. COREG [Concomitant]
  7. LANOXIN [Concomitant]
  8. COLACE (DOCUSATE SODIUM) [Concomitant]
  9. ENULOSE [Concomitant]
  10. LAXATIVES [Concomitant]
  11. LASIX [Concomitant]
  12. GLUCOTROL XL [Concomitant]
  13. LANTUS [Concomitant]
  14. LIPITOR/NET/(ATORVASTATIN CALCIUM) [Concomitant]
  15. LISINOPRIL [Concomitant]
  16. MULTIVITAMINS (PANTHENOL, RETINOL) [Concomitant]
  17. MACRODANTIN [Concomitant]
  18. NORVASC/DEN/(AMLODPINE BESILATE) [Concomitant]
  19. PAXIL [Concomitant]
  20. POTASSIUM CHLORIDE [Concomitant]
  21. PRECOSE [Concomitant]
  22. NEXIUM/USA/(ESOMEPRAZOLE MAGNESIUM) [Concomitant]
  23. ALDACTONE [Concomitant]

REACTIONS (2)
  - COLLAPSE OF LUNG [None]
  - LUNG NEOPLASM MALIGNANT [None]
